FAERS Safety Report 8291688-6 (Version None)
Quarter: 2012Q2

REPORT INFORMATION
  Report Type: 
  Country: None (occurrence: None)
  Receive Date: 20120417
  Receipt Date: 20120224
  Transmission Date: 20120825
  Serious: No
  Sender: FDA-Public Use
  Company Number: US-ASTRAZENECA-2012SE13392

PATIENT
  Age: 52 Year
  Sex: Female

DRUGS (3)
  1. SEROQUEL XR [Suspect]
     Indication: SLEEP DISORDER
     Dosage: 100 MG, TWO TABLETS AT NIGHT
     Route: 048
  2. NEXIUM [Suspect]
     Route: 048
  3. SEROQUEL XR [Suspect]
     Indication: DEPRESSION
     Dosage: 100 MG, TWO TABLETS AT NIGHT
     Route: 048

REACTIONS (4)
  - GASTROOESOPHAGEAL REFLUX DISEASE [None]
  - TONGUE DISORDER [None]
  - OFF LABEL USE [None]
  - HYPERTHYROIDISM [None]
